FAERS Safety Report 8584837-3 (Version None)
Quarter: 2012Q3

REPORT INFORMATION
  Report Type: 
  Country: None (occurrence: None)
  Receive Date: 20120810
  Receipt Date: 20120803
  Transmission Date: 20120928
  Serious: Yes (Other)
  Sender: FDA-Public Use
  Company Number: US-JNJFOC-20120802202

PATIENT
  Sex: Male
  Weight: 59.88 kg

DRUGS (10)
  1. MARINOL [Suspect]
     Indication: PAIN
     Dosage: BEFORE LUNCH AND AFTER DINNER
     Route: 065
     Dates: start: 20110801
  2. NORTRIPTYLINE HCL [Suspect]
     Indication: PRODUCT USED FOR UNKNOWN INDICATION
     Route: 065
  3. LISINOPRIL [Suspect]
     Indication: HYPERTENSION
     Route: 065
  4. ZOLPIDEM TARTRATE [Suspect]
     Indication: INSOMNIA
     Route: 065
  5. PREZISTA [Suspect]
     Indication: HIV INFECTION
     Route: 048
  6. PREGABALIN [Suspect]
     Indication: NEURALGIA
     Route: 065
  7. TRUVADA [Suspect]
     Indication: HIV INFECTION
     Route: 065
  8. TRUVADA [Suspect]
     Indication: DIABETES MELLITUS
     Route: 065
  9. MARINOL [Suspect]
     Indication: APPETITE DISORDER
     Dosage: BEFORE LUNCH AND AFTER DINNER
     Route: 065
     Dates: start: 20110801
  10. NORVIR [Suspect]
     Indication: HIV INFECTION
     Route: 065

REACTIONS (4)
  - TREMOR [None]
  - SLEEP DISORDER [None]
  - SUICIDAL IDEATION [None]
  - INSOMNIA [None]
